FAERS Safety Report 6544806-1 (Version None)
Quarter: 2010Q1

REPORT INFORMATION
  Report Type: 
  Country: None (occurrence: None)
  Receive Date: 20100121
  Receipt Date: 20100112
  Transmission Date: 20100710
  Serious: Yes (Other)
  Sender: FDA-Public Use
  Company Number: JP-ASTRAZENECA-2009SE29062

PATIENT
  Age: 92 Year
  Sex: Male

DRUGS (16)
  1. MEROPEN [Suspect]
     Indication: UROSEPSIS
     Route: 041
     Dates: start: 20091105, end: 20091110
  2. SINGULAIR [Concomitant]
     Indication: ASTHMA
     Route: 048
     Dates: end: 20091109
  3. MEDICON [Concomitant]
     Indication: ASTHMA
     Route: 048
     Dates: end: 20091109
  4. COLDRIN [Concomitant]
     Indication: ASTHMA
     Route: 048
     Dates: end: 20091109
  5. DIOVAN [Concomitant]
     Indication: HYPERTENSION
     Route: 048
     Dates: end: 20091109
  6. SALOBEL [Concomitant]
     Indication: HYPERURICAEMIA
     Route: 048
     Dates: end: 20091109
  7. NITOROL R [Concomitant]
     Indication: ANGINA PECTORIS
     Route: 048
     Dates: end: 20091109
  8. SIGMART [Concomitant]
     Indication: ANGINA PECTORIS
     Dates: end: 20091109
  9. THYRADIN S [Concomitant]
     Indication: HYPOTHYROIDISM
     Route: 048
     Dates: end: 20091109
  10. LASIX [Concomitant]
     Indication: HYPERTENSION
     Dates: end: 20091109
  11. HEPARIN SODIUM [Concomitant]
     Indication: ANTICOAGULANT THERAPY
     Dosage: 10 IU/DAILY
     Route: 041
     Dates: start: 20091028
  12. UNASYN [Concomitant]
     Indication: URINARY TRACT INFECTION
     Route: 041
     Dates: start: 20091104, end: 20091105
  13. LANDEL [Concomitant]
     Indication: HYPERTENSION
     Route: 048
     Dates: start: 20091104, end: 20091109
  14. ADONA [Concomitant]
     Indication: HAEMATURIA
     Route: 041
     Dates: start: 20091106, end: 20091108
  15. DECADRON [Concomitant]
     Indication: ASTHMA
     Route: 041
     Dates: start: 20091104, end: 20091104
  16. NEOPHYLLIN INJECTION [Concomitant]
     Indication: ASTHMA
     Route: 041
     Dates: start: 20091104, end: 20091104

REACTIONS (1)
  - DEPRESSED LEVEL OF CONSCIOUSNESS [None]
